FAERS Safety Report 9096040 (Version 1)
Quarter: 2013Q1

REPORT INFORMATION
  Report Type: Spontaneous
  Country: GB (occurrence: GB)
  Receive Date: 20130207
  Receipt Date: 20130207
  Transmission Date: 20140127
  Serious: Yes (Hospitalization, Other)
  Sender: FDA-Public Use
  Company Number: GB-JNJFOC-20130116275

PATIENT
  Age: 42 Year
  Sex: Female
  Weight: 88.9 kg

DRUGS (1)
  1. NORETHISTERONE [Suspect]
     Indication: MENORRHAGIA
     Route: 048
     Dates: start: 20120930, end: 20121125

REACTIONS (8)
  - Blood pressure increased [Recovering/Resolving]
  - Liver function test abnormal [Recovering/Resolving]
  - Convulsion [Recovering/Resolving]
  - Acne [Recovering/Resolving]
  - Erythema [Recovering/Resolving]
  - Palpitations [Recovering/Resolving]
  - Off label use [Recovered/Resolved]
  - Inappropriate schedule of drug administration [Recovered/Resolved]
